FAERS Safety Report 4546060-9 (Version None)
Quarter: 2005Q1

REPORT INFORMATION
  Report Type: 
  Country: None (occurrence: None)
  Receive Date: 20050103
  Receipt Date: 20041221
  Transmission Date: 20050727
  Serious: Yes (Life-Threatening, Hospitalization)
  Sender: FDA-Public Use
  Company Number: HQWYE147622DEC04

PATIENT
  Age: 76 Year
  Sex: Male

DRUGS (5)
  1. EFFEXOR XR [Suspect]
     Indication: DEPRESSION
     Dosage: 75 MG 1X PER 1 DAY, ORAL;  ^FOR MONTHS^
     Route: 048
  2. ASPIRIN [Suspect]
     Dosage: ^FOR YEARS^
  3. PLAVIX [Suspect]
     Dates: end: 20041101
  4. ATENOLOL [Concomitant]
  5. DECADRON [Concomitant]

REACTIONS (4)
  - BRAIN DEATH [None]
  - OBSTRUCTIVE AIRWAYS DISORDER [None]
  - POST PROCEDURAL HAEMORRHAGE [None]
  - RESPIRATORY FAILURE [None]
